FAERS Safety Report 6347156-1 (Version None)
Quarter: 2009Q3

REPORT INFORMATION
  Report Type: 
  Country: None (occurrence: None)
  Receive Date: 20090910
  Receipt Date: 20090831
  Transmission Date: 20100115
  Serious: Yes (Hospitalization)
  Sender: FDA-Public Use
  Company Number: BR-ROCHE-651698

PATIENT
  Sex: Male
  Weight: 72 kg

DRUGS (2)
  1. TAMIFLU [Suspect]
     Route: 048
     Dates: start: 20090814, end: 20090819
  2. CLAVULIN [Concomitant]
     Indication: TONSILLITIS
     Dosage: CO-INDICATION: HIGH FEVER
     Route: 048
     Dates: start: 20090813

REACTIONS (5)
  - CELLULITIS OF MALE EXTERNAL GENITAL ORGAN [None]
  - LEUKOCYTOSIS [None]
  - NECROTISING FASCIITIS [None]
  - PYREXIA [None]
  - RASH MACULAR [None]
